FAERS Safety Report 7457759-9 (Version None)
Quarter: 2011Q2

REPORT INFORMATION
  Report Type: 
  Country: None (occurrence: None)
  Receive Date: 20110504
  Receipt Date: 20110422
  Transmission Date: 20111010
  Serious: Yes (Other)
  Sender: FDA-Public Use
  Company Number: US-ENDO PHARMACEUTICALS INC.-OPER20110099

PATIENT
  Sex: Male

DRUGS (2)
  1. OXYCODONE HCL [Suspect]
     Dosage: 15 MG
     Route: 048
     Dates: start: 20110317
  2. OPANA ER [Suspect]
     Dosage: 30 MG
     Route: 048

REACTIONS (1)
  - DRUG DEPENDENCE [None]
